FAERS Safety Report 21025441 (Version 3)
Quarter: 2022Q3

REPORT INFORMATION
  Report Type: Spontaneous
  Country: PL (occurrence: PL)
  Receive Date: 20220630
  Receipt Date: 20220730
  Transmission Date: 20221027
  Serious: Yes (Life-Threatening, Hospitalization, Other)
  Sender: FDA-Public Use
  Company Number: PL-LESVI-2022002640

PATIENT
  Age: 65 Year
  Sex: Male

DRUGS (8)
  1. DULOXETINE [Interacting]
     Active Substance: DULOXETINE
     Indication: Diabetic neuropathy
     Dosage: 60 MILLIGRAM, ONCE A DAY
     Route: 065
  2. DULOXETINE [Interacting]
     Active Substance: DULOXETINE
     Indication: Type 2 diabetes mellitus
  3. METOPROLOL [Interacting]
     Active Substance: METOPROLOL
     Indication: Sinus tachycardia
     Dosage: 100 MILLIGRAM, ONCE A DAY
     Route: 065
  4. GLICLAZIDE [Suspect]
     Active Substance: GLICLAZIDE
     Indication: Diabetic neuropathy
     Dosage: 30 MILLIGRAM, ONCE A DAY
     Route: 065
  5. GLICLAZIDE [Suspect]
     Active Substance: GLICLAZIDE
     Indication: Type 2 diabetes mellitus
  6. .ALPHA.-LIPOIC ACID [Concomitant]
     Active Substance: .ALPHA.-LIPOIC ACID
     Indication: Diabetic neuropathy
     Dosage: 600 MILLIGRAM, ONCE A DAY
     Route: 065
  7. METFORMIN [Concomitant]
     Active Substance: METFORMIN HYDROCHLORIDE
     Indication: Type 2 diabetes mellitus
     Dosage: 2000 MILLIGRAM, ONCE A DAY (FOR EVERY 24 HOURS)
     Route: 065
  8. POTASSIUM [Concomitant]
     Active Substance: POTASSIUM
     Indication: Sinus tachycardia
     Dosage: UNK
     Route: 065

REACTIONS (5)
  - Bradycardia [Unknown]
  - Drug interaction [Unknown]
  - Diabetic neuropathy [Unknown]
  - Product use in unapproved indication [Unknown]
  - Drug ineffective [Unknown]
